FAERS Safety Report 8386679-0 (Version None)
Quarter: 2012Q2

REPORT INFORMATION
  Report Type: 
  Country: None (occurrence: None)
  Receive Date: 20120525
  Receipt Date: 20120517
  Transmission Date: 20120825
  Serious: Yes (Hospitalization)
  Sender: FDA-Public Use
  Company Number: CA-SANOFI-AVENTIS-2012SA035450

PATIENT
  Sex: Male
  Weight: 64 kg

DRUGS (13)
  1. KETAMINE HCL [Concomitant]
     Dosage: CADD PUMP DOSE:2 MILLIGRAM(S)/MILLILITRE
     Route: 042
     Dates: start: 20110501, end: 20120114
  2. ADVAIR DISKUS 100/50 [Concomitant]
     Route: 055
  3. PANTOPRAZOLE [Concomitant]
     Route: 048
  4. OXALIPLATIN [Suspect]
     Dosage: ONCE DAY1
     Route: 042
     Dates: start: 20110513, end: 20110707
  5. ACETAMINOPHEN [Concomitant]
     Route: 048
     Dates: start: 20111128, end: 20111206
  6. IRINOTECAN HCL [Suspect]
     Dosage: ONCE DAY1
     Route: 042
     Dates: start: 20110513, end: 20110707
  7. LOVENOX [Suspect]
     Route: 058
     Dates: start: 20111125, end: 20111128
  8. CAPECITABINE [Suspect]
     Dosage: BID ON DAYS OF XRT
     Route: 048
     Dates: start: 20110815, end: 20110830
  9. CEFTRIAXONE [Concomitant]
     Route: 042
     Dates: start: 20111130, end: 20111201
  10. HYDROMORPHONE HCL [Concomitant]
     Dosage: CADD PUMP DOSE:0.8 MILLIGRAM(S)/MILLILITRE
     Route: 042
     Dates: start: 20110501, end: 20120114
  11. CAPECITABINE [Suspect]
     Dosage: BID DAY 2-15
     Route: 048
     Dates: start: 20110513, end: 20110707
  12. METFORMIN HCL [Concomitant]
     Route: 048
     Dates: start: 20110401
  13. ACETAMINOPHEN AND TRAMADOL HCL [Concomitant]
     Route: 048
     Dates: start: 20111125, end: 20111206

REACTIONS (1)
  - HAEMATOMA INFECTION [None]
